FAERS Safety Report 6122873-7 (Version None)
Quarter: 2009Q1

REPORT INFORMATION
  Report Type: 
  Country: None (occurrence: None)
  Receive Date: 20090318
  Receipt Date: 20090313
  Transmission Date: 20090719
  Serious: Yes (Life-Threatening, Hospitalization)
  Sender: FDA-Public Use
  Company Number: B0565246A

PATIENT
  Age: 78 Year
  Sex: Female

DRUGS (6)
  1. CARVEDILOL [Suspect]
     Dosage: 12.5MG PER DAY
     Route: 048
     Dates: start: 19980101
  2. INSULIN RAPID [Suspect]
     Dosage: 8IU THREE TIMES PER DAY
     Route: 058
     Dates: start: 20020101, end: 20080901
  3. INSULIN BASAL [Suspect]
     Dosage: 8IU TWICE PER DAY
     Route: 058
     Dates: start: 20020101, end: 20080901
  4. ASPIRIN [Concomitant]
     Dates: start: 19950101
  5. RAMIPRIL [Concomitant]
     Dates: start: 20020101
  6. SIMVASTATIN [Concomitant]
     Dates: start: 20020101

REACTIONS (5)
  - BLOOD GLUCOSE DECREASED [None]
  - BRADYCARDIA [None]
  - DRUG INTERACTION [None]
  - HYPOGLYCAEMIC UNCONSCIOUSNESS [None]
  - MALAISE [None]
